FAERS Safety Report 24468540 (Version 4)
Quarter: 2024Q4

REPORT INFORMATION
  Report Type: Report from Study
  Country: US (occurrence: US)
  Receive Date: 20241018
  Receipt Date: 20241216
  Transmission Date: 20250115
  Serious: Yes (Other)
  Sender: SUNOVION
  Company Number: US-SUMITOMO PHARMA SWITZERLAND GMBH-2024SPA003792

PATIENT

DRUGS (3)
  1. ORGOVYX [Suspect]
     Active Substance: RELUGOLIX
     Indication: Prostate cancer
     Dosage: 360 MG
     Route: 048
     Dates: start: 20241004, end: 20241004
  2. ORGOVYX [Suspect]
     Active Substance: RELUGOLIX
     Dosage: 120 MG, QD
     Route: 048
     Dates: start: 20241005
  3. MYRBETRIQ [Suspect]
     Active Substance: MIRABEGRON
     Indication: Incontinence

REACTIONS (12)
  - Prostatectomy [Unknown]
  - Penile discomfort [Unknown]
  - Burning sensation [Unknown]
  - Pain [Unknown]
  - Mood swings [Unknown]
  - Incontinence [Unknown]
  - Feeling cold [Unknown]
  - Diarrhoea [Unknown]
  - Constipation [Unknown]
  - Hot flush [Recovered/Resolved]
  - Fatigue [Unknown]
  - Insomnia [Unknown]
